FAERS Safety Report 6243017-7 (Version None)
Quarter: 2009Q2

REPORT INFORMATION
  Report Type: 
  Country: None (occurrence: None)
  Receive Date: 20090624
  Receipt Date: 20090612
  Transmission Date: 20091009
  Serious: Yes (Hospitalization)
  Sender: FDA-Public Use
  Company Number: CL-PFIZER INC-2009226390

PATIENT
  Age: 4 Month

DRUGS (1)
  1. GLIBENCLAMIDE [Suspect]

REACTIONS (2)
  - HYPOGLYCAEMIC SEIZURE [None]
  - INTENTIONAL DRUG MISUSE [None]
